FAERS Safety Report 5766522-6 (Version None)
Quarter: 2008Q2

REPORT INFORMATION
  Report Type: 
  Country: None (occurrence: None)
  Receive Date: 20080612
  Receipt Date: 20080529
  Transmission Date: 20081010
  Serious: Yes (Other)
  Sender: FDA-Public Use
  Company Number: ZA-ROCHE-567533

PATIENT
  Sex: Male

DRUGS (2)
  1. XELODA [Suspect]
     Dosage: PATIENT ON SECOND LINE TREATMENT WITH CAPECITABINE. STOP DATE REPORTED AS 2008.
     Route: 065
  2. VITAMINS NOS [Concomitant]

REACTIONS (2)
  - DYSARTHRIA [None]
  - LEUKOENCEPHALOPATHY [None]
